FAERS Safety Report 4447590-0 (Version None)
Quarter: 2004Q3

REPORT INFORMATION
  Report Type: 
  Country: None (occurrence: None)
  Receive Date: 20040823
  Receipt Date: 20040621
  Transmission Date: 20050211
  Serious: No
  Sender: FDA-Public Use
  Company Number: PHEH2004US06712

PATIENT
  Age: 62 Year
  Sex: Male

DRUGS (6)
  1. ZELNORM [Suspect]
     Indication: IMPAIRED GASTRIC EMPTYING
     Dosage: 6 MG, BID, ORAL
     Route: 048
     Dates: start: 20040531, end: 20040617
  2. AMIODARONE HCL [Concomitant]
  3. ALBUTEROL [Concomitant]
  4. HALOPERIDOL [Concomitant]
  5. REGLAN [Concomitant]
  6. PHENYLEPHRINE [Concomitant]

REACTIONS (3)
  - BLOOD ALKALINE PHOSPHATASE INCREASED [None]
  - BLOOD BILIRUBIN INCREASED [None]
  - CHOLESTASIS [None]
